FAERS Safety Report 8289728-3 (Version None)
Quarter: 2012Q2

REPORT INFORMATION
  Report Type: 
  Country: None (occurrence: None)
  Receive Date: 20120417
  Receipt Date: 20120412
  Transmission Date: 20120825
  Serious: No
  Sender: FDA-Public Use
  Company Number: US-PFIZER INC-2012091895

PATIENT
  Sex: Female
  Weight: 127 kg

DRUGS (2)
  1. TOVIAZ [Concomitant]
     Dosage: UNK
  2. PROTONIX [Suspect]
     Indication: GASTROOESOPHAGEAL REFLUX DISEASE
     Dosage: 40 MG, 1X/DAY
     Route: 048
     Dates: end: 20120201

REACTIONS (2)
  - DYSPEPSIA [None]
  - BLOOD CHOLESTEROL INCREASED [None]
